FAERS Safety Report 18859035 (Version 1)
Quarter: 2021Q1

REPORT INFORMATION
  Report Type: Spontaneous
  Country: US (occurrence: US)
  Receive Date: 20210207
  Receipt Date: 20210207
  Transmission Date: 20210420
  Serious: No
  Sender: FDA-Public Use
  Company Number: None

PATIENT
  Age: 71 Year
  Sex: Female
  Weight: 74.25 kg

DRUGS (7)
  1. GABAPENTIN 300MG CAPSULE [Suspect]
     Active Substance: GABAPENTIN
     Indication: NEURODERMATITIS
     Dosage: ?          QUANTITY:1 CAPSULE(S);?
     Route: 048
  2. CLOBETASOL [Concomitant]
     Active Substance: CLOBETASOL
  3. AMLODIPINE [Concomitant]
     Active Substance: AMLODIPINE BESYLATE
  4. ATORVASTATIN [Concomitant]
     Active Substance: ATORVASTATIN
  5. VALSARTAN. [Concomitant]
     Active Substance: VALSARTAN
  6. VITAMIN D [Concomitant]
     Active Substance: VITAMIN D NOS
  7. CERA VE ANTI?ITCH CREAM [Concomitant]

REACTIONS (4)
  - Drug ineffective [None]
  - Uveitis [None]
  - Dyspnoea [None]
  - Pulmonary sarcoidosis [None]

NARRATIVE: CASE EVENT DATE: 20201214
